FAERS Safety Report 4848510-7 (Version None)
Quarter: 2005Q4

REPORT INFORMATION
  Report Type: 
  Country: None (occurrence: None)
  Receive Date: 20051115
  Receipt Date: 20050902
  Transmission Date: 20060501
  Serious: No
  Sender: FDA-Public Use
  Company Number: S05-USA-04221-01

PATIENT
  Age: 82 Year
  Sex: Female

DRUGS (16)
  1. NAMENDA [Suspect]
     Indication: DEMENTIA ALZHEIMER'S TYPE
     Dosage: 10 MG QAM PO
     Route: 048
     Dates: start: 20050824
  2. NAMENDA [Suspect]
     Indication: DEMENTIA ALZHEIMER'S TYPE
     Dosage: 5 MG QD PO
     Route: 048
     Dates: start: 20050803, end: 20050809
  3. NAMENDA [Suspect]
     Indication: DEMENTIA ALZHEIMER'S TYPE
     Dosage: 5 MG BID PO
     Route: 048
     Dates: start: 20050810, end: 20050816
  4. NAMENDA [Suspect]
     Indication: DEMENTIA ALZHEIMER'S TYPE
     Dosage: 15 MG QD PO
     Route: 048
     Dates: start: 20050817, end: 20050823
  5. ARICEPT [Concomitant]
  6. NEXIUM [Concomitant]
  7. COZAAR [Concomitant]
  8. ASPIRIN [Concomitant]
  9. TOPROL (METOPROLOL) [Concomitant]
  10. LOTREL [Concomitant]
  11. SYNTHROID [Concomitant]
  12. CLARINEX [Concomitant]
  13. ZOLOFT [Concomitant]
  14. ULTRAM [Concomitant]
  15. FOSAMAX [Concomitant]
  16. XALATAN [Concomitant]

REACTIONS (1)
  - CONFUSIONAL STATE [None]
